FAERS Safety Report 18765227 (Version 15)
Quarter: 2022Q3

REPORT INFORMATION
  Report Type: Report from Study
  Country: CN (occurrence: CN)
  Receive Date: 20210120
  Receipt Date: 20220920
  Transmission Date: 20221027
  Serious: Yes (Death, Hospitalization, Other)
  Sender: FDA-Public Use
  Company Number: CN-TAKEDA-2021TUS001076

PATIENT
  Age: 66 Year
  Sex: Female

DRUGS (9)
  1. IXAZOMIB [Suspect]
     Active Substance: IXAZOMIB
     Indication: Product used for unknown indication
     Dosage: 4 MILLIGRAM, 1/WEEK
     Route: 048
     Dates: start: 20200902, end: 20210219
  2. METHYLPREDNISOLONE [Concomitant]
     Active Substance: METHYLPREDNISOLONE
     Indication: Plasma cell myeloma
     Dosage: 4 MILLIGRAM, QOD
     Route: 048
     Dates: start: 20200825, end: 20210104
  3. OMEPRAZOLE [Concomitant]
     Active Substance: OMEPRAZOLE
     Indication: Prophylaxis
     Dosage: 20 MILLIGRAM, QOD
     Route: 048
     Dates: start: 20200825, end: 20210104
  4. BENZBROMARONE [Concomitant]
     Active Substance: BENZBROMARONE
     Indication: Blood uric acid decreased
     Dosage: 50 MILLIGRAM, QOD
     Route: 048
     Dates: start: 20200825, end: 20210104
  5. ONDANSETRON HYDROCHLORIDE [Concomitant]
     Active Substance: ONDANSETRON HYDROCHLORIDE
     Indication: Prophylaxis
     Dosage: 4 MILLIGRAM, 1/WEEK
     Route: 048
     Dates: start: 20200902, end: 20210104
  6. ATORVASTATIN CALCIUM [Concomitant]
     Active Substance: ATORVASTATIN CALCIUM
     Indication: Prophylaxis
     Dosage: 20 MILLIGRAM, QOD
     Route: 048
     Dates: start: 20200928
  7. RIVAROXABAN [Concomitant]
     Active Substance: RIVAROXABAN
     Indication: Prophylaxis
     Dosage: 10 MILLIGRAM, QOD
     Route: 048
     Dates: start: 20201026, end: 20210114
  8. POTASSIUM CHLORIDE [Concomitant]
     Active Substance: POTASSIUM CHLORIDE
     Indication: Blood potassium abnormal
     Dosage: 250 MILLIGRAM, TID
     Route: 048
     Dates: start: 20201026
  9. BUDESONIDE\FORMOTEROL [Concomitant]
     Active Substance: BUDESONIDE\FORMOTEROL
     Indication: Asthma
     Dosage: UNK, QD
     Route: 055
     Dates: start: 2020, end: 20210219

REACTIONS (6)
  - Cardiac failure [Fatal]
  - Cerebral infarction [Fatal]
  - Foot fracture [Recovering/Resolving]
  - Blood bilirubin increased [Recovered/Resolved]
  - Oedema peripheral [Unknown]
  - Off label use [Unknown]

NARRATIVE: CASE EVENT DATE: 20201001
